FAERS Safety Report 21696177 (Version 1)
Quarter: 2022Q4

REPORT INFORMATION
  Report Type: Spontaneous
  Country: US (occurrence: None)
  Receive Date: 20221207
  Receipt Date: 20221207
  Transmission Date: 20230112
  Serious: Yes (Hospitalization)
  Sender: FDA-Public Use
  Company Number: None

PATIENT
  Age: 79 Year
  Sex: Male
  Weight: 108 kg

DRUGS (1)
  1. ENOXAPARIN [Suspect]
     Active Substance: ENOXAPARIN
     Indication: Pulmonary embolism
     Dosage: FREQUENCY : ONCE;?
     Route: 058
     Dates: start: 20221202, end: 20221203

REACTIONS (1)
  - Abdominal wall haematoma [None]

NARRATIVE: CASE EVENT DATE: 20221203
